FAERS Safety Report 25196719 (Version 1)
Quarter: 2025Q2

REPORT INFORMATION
  Report Type: Report from Study
  Country: CA (occurrence: CA)
  Receive Date: 20250415
  Receipt Date: 20250415
  Transmission Date: 20250717
  Serious: Yes (Other)
  Sender: CELLTRION
  Company Number: CA-CELLTRION INC.-2025CA010465

PATIENT

DRUGS (4)
  1. RITUXIMAB [Suspect]
     Active Substance: RITUXIMAB
     Indication: Diffuse large B-cell lymphoma
     Route: 065
  2. OBINUTUZUMAB [Suspect]
     Active Substance: OBINUTUZUMAB
     Indication: Diffuse large B-cell lymphoma
     Route: 042
  3. FAMOTIDINE [Concomitant]
     Active Substance: FAMOTIDINE
  4. TAMSULOSIN [Concomitant]
     Active Substance: TAMSULOSIN

REACTIONS (2)
  - Renal failure [Unknown]
  - Product dose omission issue [Unknown]
